FAERS Safety Report 24454321 (Version 2)
Quarter: 2024Q4

REPORT INFORMATION
  Report Type: Report from Study
  Country: CA (occurrence: CA)
  Receive Date: 20241017
  Receipt Date: 20241018
  Transmission Date: 20250114
  Serious: No
  Sender: ROCHE
  Company Number: CA-ROCHE-3470493

PATIENT
  Sex: Female

DRUGS (20)
  1. RITUXAN [Suspect]
     Active Substance: RITUXIMAB
     Indication: Anti-neutrophil cytoplasmic antibody positive vasculitis
     Route: 041
     Dates: start: 20200220, end: 20200304
  2. RITUXAN [Suspect]
     Active Substance: RITUXIMAB
     Indication: Glomerulonephritis
     Route: 041
     Dates: start: 20200904
  3. ARANESP [Concomitant]
     Active Substance: DARBEPOETIN ALFA
     Dosage: 30 MCG/0.3 ML
     Route: 058
  4. ACRIVASTINE [Concomitant]
     Active Substance: ACRIVASTINE
     Route: 048
     Dates: start: 20200220
  5. CITALOPRAM [Concomitant]
     Active Substance: CITALOPRAM
     Route: 048
  6. CHOLECALCIFEROL [Concomitant]
     Active Substance: CHOLECALCIFEROL
     Route: 048
  7. FLOVENT [Concomitant]
     Active Substance: FLUTICASONE PROPIONATE
     Dosage: TWO INHALATIONS
     Route: 055
  8. FOLIC ACID [Concomitant]
     Active Substance: FOLIC ACID
     Route: 048
  9. MEPRON [Concomitant]
     Active Substance: ATOVAQUONE
     Dosage: 750 MG/5 ML - TWO SPOONS (10ML) DAILY?FOR 6-7 MONTHS
     Route: 048
     Dates: start: 20200221
  10. PANTOPRAZOLE [Concomitant]
     Active Substance: PANTOPRAZOLE
     Route: 048
  11. PERINDOPRIL [Concomitant]
     Active Substance: PERINDOPRIL
     Route: 048
  12. PERINDOPRIL [Concomitant]
     Active Substance: PERINDOPRIL
     Route: 048
  13. PERINDOPRIL [Concomitant]
     Active Substance: PERINDOPRIL
     Route: 048
  14. PREDNISONE [Concomitant]
     Active Substance: PREDNISONE
     Dosage: TWO 5MG DAILY
     Route: 048
  15. PREGABALIN [Concomitant]
     Active Substance: PREGABALIN
     Dosage: HOLD 12 HOURS BEFORE RITUXAN
     Route: 048
  16. PRO CAL [Concomitant]
     Route: 048
  17. ALBUTEROL [Concomitant]
     Active Substance: ALBUTEROL
     Dosage: TWO INHALATION FOUR TIMES DAILY AS REQUIRED.
     Route: 055
  18. SOLU-MEDROL [Concomitant]
     Active Substance: METHYLPREDNISOLONE SODIUM SUCCINATE
     Route: 042
     Dates: start: 20200220
  19. TYLENOL [Concomitant]
     Active Substance: ACETAMINOPHEN
     Route: 048
     Dates: start: 20200220
  20. AMLODIPINE [Concomitant]
     Active Substance: AMLODIPINE BESYLATE
     Dosage: TWO 2.5MG DAILY,?HOLD 12 HOURS BEFORE RITUXAN
     Route: 048

REACTIONS (3)
  - Rhinorrhoea [Unknown]
  - Aphonia [Unknown]
  - COVID-19 [Unknown]
